FAERS Safety Report 19058680 (Version 1)
Quarter: 2021Q1

REPORT INFORMATION
  Report Type: Spontaneous
  Country: US (occurrence: US)
  Receive Date: 20210325
  Receipt Date: 20210325
  Transmission Date: 20210420
  Serious: No
  Sender: FDA-Public Use
  Company Number: US-ASTRAZENECA-2021A176969

PATIENT
  Age: 68 Year
  Sex: Male

DRUGS (1)
  1. PRILOSEC OTC [Suspect]
     Active Substance: OMEPRAZOLE MAGNESIUM
     Indication: DYSPEPSIA
     Dosage: 1.0DF UNKNOWN
     Route: 048

REACTIONS (7)
  - Abnormal dreams [Not Recovered/Not Resolved]
  - Dizziness [Not Recovered/Not Resolved]
  - Therapeutic product effect decreased [Unknown]
  - Neck pain [Not Recovered/Not Resolved]
  - Insomnia [Not Recovered/Not Resolved]
  - Drug ineffective [Unknown]
  - Arthralgia [Not Recovered/Not Resolved]
